FAERS Safety Report 25989696 (Version 1)
Quarter: 2025Q4

REPORT INFORMATION
  Report Type: Spontaneous
  Country: EU (occurrence: EU)
  Receive Date: 20251103
  Receipt Date: 20251103
  Transmission Date: 20260118
  Serious: Yes (Other)
  Sender: MERCK SHARP & DOHME LLC
  Company Number: None

PATIENT
  Age: 1 Day
  Sex: Male
  Weight: 2.89 kg

DRUGS (4)
  1. PIFELTRO [Suspect]
     Active Substance: DORAVIRINE
     Indication: HIV infection
     Dosage: 100 MG PER DAY
     Route: 064
     Dates: start: 20250118, end: 20251004
  2. TIVICAY [Suspect]
     Active Substance: DOLUTEGRAVIR SODIUM
     Indication: HIV infection
     Dosage: 1 TABLET 50 MG PER DAY
     Route: 064
     Dates: start: 20250118, end: 20251004
  3. LENACAPAVIR SODIUM [Suspect]
     Active Substance: LENACAPAVIR SODIUM
     Indication: HIV infection
     Dosage: 927 MG IN SUBCUTANEOUS ON DECEMBER 30, 2024, AND JULY 1, 2025
     Route: 064
     Dates: start: 20250118, end: 20251004
  4. RUKOBIA [Suspect]
     Active Substance: FOSTEMSAVIR TROMETHAMINE
     Indication: HIV infection
     Dosage: 600MG MORNING AND EVENING
     Route: 064
     Dates: start: 20250118, end: 20251004

REACTIONS (2)
  - Human immunodeficiency virus transmission [Not Recovered/Not Resolved]
  - Maternal exposure during pregnancy [Recovered/Resolved]

NARRATIVE: CASE EVENT DATE: 20251004
